FAERS Safety Report 6403941-9 (Version None)
Quarter: 2009Q4

REPORT INFORMATION
  Report Type: 
  Country: None (occurrence: None)
  Receive Date: 20091015
  Receipt Date: 20091015
  Transmission Date: 20100525
  Serious: Yes (Other)
  Sender: FDA-Public Use
  Company Number: None

PATIENT
  Age: 44 Year
  Sex: Male
  Weight: 97.0698 kg

DRUGS (2)
  1. LEVAQUIN [Suspect]
     Indication: SINUSITIS
     Dosage: 750 MG QD PO
     Route: 048
     Dates: start: 20090828
  2. LEVAQUIN [Suspect]
     Indication: SINUSITIS
     Dosage: 750 MG QD PO
     Route: 048
     Dates: start: 20090901

REACTIONS (2)
  - BURNING SENSATION [None]
  - TENDON PAIN [None]
